FAERS Safety Report 7005293-2 (Version None)
Quarter: 2010Q3

REPORT INFORMATION
  Report Type: 
  Country: None (occurrence: None)
  Receive Date: 20100921
  Receipt Date: 20100908
  Transmission Date: 20110219
  Serious: Yes (Hospitalization)
  Sender: FDA-Public Use
  Company Number: US-ELI_LILLY_AND_COMPANY-US201008007935

PATIENT
  Sex: Male
  Weight: 104 kg

DRUGS (1)
  1. EFFIENT [Suspect]
     Dates: start: 20100729

REACTIONS (1)
  - ACUTE MYOCARDIAL INFARCTION [None]
